FAERS Safety Report 17434257 (Version 1)
Quarter: 2020Q1

REPORT INFORMATION
  Report Type: Spontaneous
  Country: US (occurrence: US)
  Receive Date: 20200218
  Receipt Date: 20200218
  Transmission Date: 20200409
  Serious: Yes (Hospitalization)
  Sender: FDA-Public Use
  Company Number: None

PATIENT
  Age: 77 Year
  Sex: Male

DRUGS (8)
  1. LOKELMA [Suspect]
     Active Substance: SODIUM ZIRCONIUM CYCLOSILICATE
     Indication: PRODUCT USED FOR UNKNOWN INDICATION
     Route: 048
     Dates: start: 20190909, end: 20191201
  2. CARTIA XT 180 MG [Concomitant]
  3. BASAGLAR 100 UNS/ML [Concomitant]
  4. TAMSULOSIN 0.4 MG [Concomitant]
     Active Substance: TAMSULOSIN
  5. GLIPIZIDE 10 MG [Concomitant]
     Active Substance: GLIPIZIDE
  6. SIMVASTATIN 10 MG [Concomitant]
     Active Substance: SIMVASTATIN
  7. ASPIRIN 81 MG [Concomitant]
     Active Substance: ASPIRIN
  8. VIT D2 50,000 UNITS [Concomitant]

REACTIONS (2)
  - Chest pain [None]
  - Dizziness [None]

NARRATIVE: CASE EVENT DATE: 20191101
